FAERS Safety Report 5886624-3 (Version None)
Quarter: 2008Q3

REPORT INFORMATION
  Report Type: 
  Country: None (occurrence: None)
  Receive Date: 20080917
  Receipt Date: 20080908
  Transmission Date: 20090109
  Serious: Yes (Other)
  Sender: FDA-Public Use
  Company Number: PHHY2008JP09067

PATIENT
  Sex: Male

DRUGS (10)
  1. ZOMETA [Suspect]
     Indication: MULTIPLE MYELOMA
     Dosage: 4 MG, Q3MO
     Route: 041
     Dates: start: 20060619, end: 20071105
  2. BISPHONAL [Suspect]
     Indication: MULTIPLE MYELOMA
     Dosage: UNK
     Route: 041
     Dates: start: 19991222, end: 20060410
  3. BISPHONAL [Suspect]
     Dosage: UNK
     Route: 041
     Dates: start: 20000614, end: 20000906
  4. BISPHONAL [Suspect]
     Dosage: UNK
     Route: 041
     Dates: start: 20001115
  5. BISPHONAL [Suspect]
     Dosage: UNK
     Route: 041
     Dates: start: 20000711, end: 20031110
  6. BISPHONAL [Suspect]
     Dosage: UNK
     Route: 041
     Dates: start: 20040322, end: 20050314
  7. BISPHONAL [Suspect]
     Dosage: UNK
     Route: 041
     Dates: start: 20050725
  8. BISPHONAL [Suspect]
     Dosage: UNK
     Route: 041
     Dates: start: 20051003, end: 20051128
  9. BISPHONAL [Suspect]
     Dosage: UNK
     Route: 041
     Dates: start: 20060130, end: 20060410
  10. AREDIA [Concomitant]
     Route: 042

REACTIONS (12)
  - BIOPSY GINGIVAL [None]
  - BONE DISORDER [None]
  - DENTAL OPERATION [None]
  - HYPOAESTHESIA ORAL [None]
  - LYMPHOCYTE COUNT INCREASED [None]
  - NEISSERIA INFECTION [None]
  - OSTEOMYELITIS [None]
  - OSTEONECROSIS [None]
  - PLATELET COUNT DECREASED [None]
  - PURULENT DISCHARGE [None]
  - TOOTH EXTRACTION [None]
  - TOOTHACHE [None]
